FAERS Safety Report 16805239 (Version 1)
Quarter: 2019Q3

REPORT INFORMATION
  Report Type: Spontaneous
  Country: US (occurrence: US)
  Receive Date: 20190913
  Receipt Date: 20190913
  Transmission Date: 20191005
  Serious: Yes (Life-Threatening, Hospitalization, Other)
  Sender: FDA-Public Use
  Company Number: US-MYLANLABS-2019M1085245

PATIENT
  Age: 83 Year
  Sex: Male

DRUGS (3)
  1. LORAZEPAM. [Concomitant]
     Active Substance: LORAZEPAM
     Indication: PRODUCT USED FOR UNKNOWN INDICATION
     Dosage: PILLS
     Route: 065
  2. EPINEPHRINE. [Concomitant]
     Active Substance: EPINEPHRINE
     Indication: CARDIOGENIC SHOCK
     Route: 065
  3. SOTALOL. [Suspect]
     Active Substance: SOTALOL
     Indication: PRODUCT USED FOR UNKNOWN INDICATION
     Dosage: PILLS
     Route: 065

REACTIONS (6)
  - Intentional overdose [Recovering/Resolving]
  - Cardiogenic shock [Recovering/Resolving]
  - Electrocardiogram QT prolonged [Recovering/Resolving]
  - Unresponsive to stimuli [Recovering/Resolving]
  - Bradycardia [Recovering/Resolving]
  - Toxicity to various agents [Recovering/Resolving]
